FAERS Safety Report 5674903-4 (Version None)
Quarter: 2008Q1

REPORT INFORMATION
  Report Type: 
  Country: None (occurrence: None)
  Receive Date: 20080320
  Receipt Date: 20080310
  Transmission Date: 20080703
  Serious: Yes (Death)
  Sender: FDA-Public Use
  Company Number: IE-ROCHE-552452

PATIENT
  Age: 75 Year
  Sex: Female

DRUGS (3)
  1. XELODA [Suspect]
     Indication: DRUG USE FOR UNKNOWN INDICATION
     Route: 065
  2. LOSEC I.V. [Suspect]
     Route: 042
  3. VALOID [Suspect]
     Route: 042

REACTIONS (5)
  - CARDIAC ARREST [None]
  - LOSS OF CONSCIOUSNESS [None]
  - MALAISE [None]
  - VENTRICULAR FIBRILLATION [None]
  - VOMITING [None]
